FAERS Safety Report 24137035 (Version 1)
Quarter: 2024Q3

REPORT INFORMATION
  Report Type: Spontaneous
  Country: US (occurrence: US)
  Receive Date: 20240725
  Receipt Date: 20240725
  Transmission Date: 20241016
  Serious: Yes (Other)
  Sender: GLENMARK
  Company Number: US-MLMSERVICE-20240705-PI120623-00218-1

PATIENT

DRUGS (46)
  1. HYDROCORTISONE BUTYRATE [Suspect]
     Active Substance: HYDROCORTISONE BUTYRATE
     Indication: Metastases to lymph nodes
     Dosage: UNK
     Route: 037
  2. HYDROCORTISONE BUTYRATE [Suspect]
     Active Substance: HYDROCORTISONE BUTYRATE
     Indication: Diffuse large B-cell lymphoma
  3. HYDROCORTISONE BUTYRATE [Suspect]
     Active Substance: HYDROCORTISONE BUTYRATE
     Indication: Metastases to soft tissue
  4. HYDROCORTISONE BUTYRATE [Suspect]
     Active Substance: HYDROCORTISONE BUTYRATE
     Indication: Intestinal metastasis
  5. HYDROCORTISONE BUTYRATE [Suspect]
     Active Substance: HYDROCORTISONE BUTYRATE
     Indication: Metastases to chest wall
  6. HYDROCORTISONE BUTYRATE [Suspect]
     Active Substance: HYDROCORTISONE BUTYRATE
     Indication: Diffuse large B-cell lymphoma
  7. OBINUTUZUMAB [Suspect]
     Active Substance: OBINUTUZUMAB
     Indication: Intestinal metastasis
     Dosage: 5000 MILLIGRAM CYCLICAL (1000 MG ON DAYS 1, 8, 15, 22, AND 29)
     Route: 065
  8. OBINUTUZUMAB [Suspect]
     Active Substance: OBINUTUZUMAB
     Indication: Diffuse large B-cell lymphoma
  9. OBINUTUZUMAB [Suspect]
     Active Substance: OBINUTUZUMAB
     Indication: Metastases to soft tissue
  10. OBINUTUZUMAB [Suspect]
     Active Substance: OBINUTUZUMAB
     Indication: Diffuse large B-cell lymphoma
  11. OBINUTUZUMAB [Suspect]
     Active Substance: OBINUTUZUMAB
     Indication: Metastases to lymph nodes
  12. METHYLPREDNISOLONE [Suspect]
     Active Substance: METHYLPREDNISOLONE
     Indication: Metastases to soft tissue
     Dosage: 420 MILLIGRAM/SQ. METER CYCLICAL (30 MG/M2 TWICE DAILY [BID] ON DAYS 1-7.
     Route: 065
  13. METHYLPREDNISOLONE [Suspect]
     Active Substance: METHYLPREDNISOLONE
     Indication: Diffuse large B-cell lymphoma
  14. METHYLPREDNISOLONE [Suspect]
     Active Substance: METHYLPREDNISOLONE
     Indication: Intestinal metastasis
  15. METHYLPREDNISOLONE [Suspect]
     Active Substance: METHYLPREDNISOLONE
     Indication: Metastases to lymph nodes
  16. METHYLPREDNISOLONE [Suspect]
     Active Substance: METHYLPREDNISOLONE
     Indication: Diffuse large B-cell lymphoma
  17. AZACITIDINE [Suspect]
     Active Substance: AZACITIDINE
     Indication: Metastases to lymph nodes
     Dosage: 525 MILLIGRAM/SQ. METER CYCLICAL (75 MG/M2 ON DAYS 8-14)
     Route: 065
  18. AZACITIDINE [Suspect]
     Active Substance: AZACITIDINE
     Indication: Intestinal metastasis
  19. AZACITIDINE [Suspect]
     Active Substance: AZACITIDINE
     Indication: Metastases to soft tissue
  20. AZACITIDINE [Suspect]
     Active Substance: AZACITIDINE
     Indication: Diffuse large B-cell lymphoma
  21. AZACITIDINE [Suspect]
     Active Substance: AZACITIDINE
     Indication: Diffuse large B-cell lymphoma
  22. METHOTREXATE [Suspect]
     Active Substance: METHOTREXATE
     Indication: Intestinal metastasis
     Dosage: UNK
     Route: 037
  23. METHOTREXATE [Suspect]
     Active Substance: METHOTREXATE
     Indication: Diffuse large B-cell lymphoma
  24. METHOTREXATE [Suspect]
     Active Substance: METHOTREXATE
     Indication: Diffuse large B-cell lymphoma
  25. METHOTREXATE [Suspect]
     Active Substance: METHOTREXATE
     Indication: Metastases to soft tissue
  26. METHOTREXATE [Suspect]
     Active Substance: METHOTREXATE
     Indication: Metastases to lymph nodes
  27. VENETOCLAX [Suspect]
     Active Substance: VENETOCLAX
     Indication: Intestinal metastasis
     Dosage: 11200 MILLIGRAM CYCLICAL (400 MG ON DAYS 8-35)
     Route: 065
  28. VENETOCLAX [Suspect]
     Active Substance: VENETOCLAX
     Indication: Diffuse large B-cell lymphoma
  29. VENETOCLAX [Suspect]
     Active Substance: VENETOCLAX
     Indication: Metastases to chest wall
  30. VENETOCLAX [Suspect]
     Active Substance: VENETOCLAX
     Indication: Metastases to lymph nodes
  31. VENETOCLAX [Suspect]
     Active Substance: VENETOCLAX
     Indication: Diffuse large B-cell lymphoma
  32. VINCRISTINE [Suspect]
     Active Substance: VINCRISTINE
     Indication: Metastases to lymph nodes
     Dosage: 1 MILLIGRAM/SQ. METER CYCLICAL (1 MG/M2 ON DAY 1)
     Route: 065
  33. VINCRISTINE [Suspect]
     Active Substance: VINCRISTINE
     Indication: Metastases to chest wall
  34. VINCRISTINE [Suspect]
     Active Substance: VINCRISTINE
     Indication: Intestinal metastasis
  35. VINCRISTINE [Suspect]
     Active Substance: VINCRISTINE
     Indication: Diffuse large B-cell lymphoma
  36. VINCRISTINE [Suspect]
     Active Substance: VINCRISTINE
     Indication: Diffuse large B-cell lymphoma
  37. CYTARABINE [Suspect]
     Active Substance: CYTARABINE
     Indication: Metastases to chest wall
     Dosage: UNK
     Route: 037
  38. CYTARABINE [Suspect]
     Active Substance: CYTARABINE
     Indication: Diffuse large B-cell lymphoma
  39. CYTARABINE [Suspect]
     Active Substance: CYTARABINE
     Indication: Intestinal metastasis
  40. CYTARABINE [Suspect]
     Active Substance: CYTARABINE
     Indication: Diffuse large B-cell lymphoma
  41. CYTARABINE [Suspect]
     Active Substance: CYTARABINE
     Indication: Metastases to lymph nodes
  42. CYCLOPHOSPHAMIDE [Suspect]
     Active Substance: CYCLOPHOSPHAMIDE
     Indication: Metastases to chest wall
     Dosage: 300 MILLIGRAM/SQ. METER CYCLICAL (300 MG/M2 ON DAY 1)
     Route: 065
  43. CYCLOPHOSPHAMIDE [Suspect]
     Active Substance: CYCLOPHOSPHAMIDE
     Indication: Diffuse large B-cell lymphoma
  44. CYCLOPHOSPHAMIDE [Suspect]
     Active Substance: CYCLOPHOSPHAMIDE
     Indication: Metastases to lymph nodes
  45. CYCLOPHOSPHAMIDE [Suspect]
     Active Substance: CYCLOPHOSPHAMIDE
     Indication: Intestinal metastasis
  46. CYCLOPHOSPHAMIDE [Suspect]
     Active Substance: CYCLOPHOSPHAMIDE
     Indication: Diffuse large B-cell lymphoma

REACTIONS (7)
  - Bacillus infection [Unknown]
  - Brain abscess [Unknown]
  - Clostridium difficile colitis [Unknown]
  - Gastric varices [Unknown]
  - Bacterial sepsis [Unknown]
  - Endocarditis bacterial [Unknown]
  - Venous thrombosis [Unknown]
